FAERS Safety Report 15151873 (Version 2)
Quarter: 2018Q4

REPORT INFORMATION
  Report Type: Report from Study
  Country: None (occurrence: US)
  Receive Date: 20180717
  Receipt Date: 20181001
  Transmission Date: 20190204
  Serious: Yes (Other)
  Sender: FDA-Public Use
  Company Number: US-ABBVIE-17K-163-1878657-00

PATIENT
  Age: 70 Year
  Sex: Female

DRUGS (1)
  1. HUMIRA [Suspect]
     Active Substance: ADALIMUMAB
     Indication: CROHN^S DISEASE
     Route: 058
     Dates: start: 201608, end: 201801

REACTIONS (21)
  - Autoimmune disorder [Unknown]
  - Pain in extremity [Not Recovered/Not Resolved]
  - Feeling abnormal [Unknown]
  - Post procedural diarrhoea [Not Recovered/Not Resolved]
  - Antinuclear antibody increased [Unknown]
  - Dyspepsia [Unknown]
  - Dry eye [Unknown]
  - Complications of transplant surgery [Unknown]
  - Joint stiffness [Unknown]
  - Lyme disease [Not Recovered/Not Resolved]
  - Chest pain [Unknown]
  - Crohn^s disease [Unknown]
  - Sciatica [Unknown]
  - Corneal transplant [Unknown]
  - Musculoskeletal stiffness [Not Recovered/Not Resolved]
  - Cataract [Unknown]
  - Arthralgia [Not Recovered/Not Resolved]
  - Peripheral swelling [Unknown]
  - Joint swelling [Unknown]
  - Gout [Unknown]
  - Pain [Unknown]

NARRATIVE: CASE EVENT DATE: 201707
